FAERS Safety Report 24824428 (Version 1)
Quarter: 2025Q1

REPORT INFORMATION
  Report Type: Spontaneous
  Country: ES (occurrence: ES)
  Receive Date: 20250109
  Receipt Date: 20250109
  Transmission Date: 20250408
  Serious: Yes (Other)
  Sender: MYLAN
  Company Number: ES-MYLANLABS-2025M1001167

PATIENT

DRUGS (3)
  1. RIVASTIGMINE [Interacting]
     Active Substance: RIVASTIGMINE
     Indication: Product used for unknown indication
     Route: 065
  2. LEVODOPA [Interacting]
     Active Substance: LEVODOPA
     Indication: Product used for unknown indication
     Route: 065
  3. CARBIDOPA [Interacting]
     Active Substance: CARBIDOPA
     Indication: Product used for unknown indication
     Route: 065

REACTIONS (2)
  - Skin ulcer [Unknown]
  - Drug interaction [Unknown]
